FAERS Safety Report 13184725 (Version 1)
Quarter: 2017Q1

REPORT INFORMATION
  Report Type: Spontaneous
  Country: US (occurrence: US)
  Receive Date: 20170203
  Receipt Date: 20170203
  Transmission Date: 20170428
  Serious: Yes (Life-Threatening, Hospitalization)
  Sender: FDA-Public Use
  Company Number: None

PATIENT
  Age: 76 Year
  Sex: Male
  Weight: 68.55 kg

DRUGS (23)
  1. NEXIUM [Concomitant]
     Active Substance: ESOMEPRAZOLE MAGNESIUM
  2. ZANTAC [Concomitant]
     Active Substance: RANITIDINE HYDROCHLORIDE
  3. BENEFIBER [Concomitant]
     Active Substance: STARCH, WHEAT
  4. LISINOPRIL. [Concomitant]
     Active Substance: LISINOPRIL
  5. ONDANSETRON [Concomitant]
     Active Substance: ONDANSETRON
  6. EMETROL [Concomitant]
     Active Substance: DEXTROSE\FRUCTOSE\PHOSPHORIC ACID
  7. TYLENOL [Concomitant]
     Active Substance: ACETAMINOPHEN
  8. ENSURE [Concomitant]
     Active Substance: AMINO ACIDS\DEXTROSE\ELECTROLYTES NOS\SOYBEAN OIL\VITAMINS
  9. MULTIVITAMIN [Concomitant]
     Active Substance: VITAMINS
  10. MIRALAX [Concomitant]
     Active Substance: POLYETHYLENE GLYCOL 3350
  11. PROCHLORPERAZINE. [Concomitant]
     Active Substance: PROCHLORPERAZINE
  12. EMLA [Concomitant]
     Active Substance: LIDOCAINE\PRILOCAINE
  13. PEPTO-BISMOL [Concomitant]
     Active Substance: BISMUTH SUBSALICYLATE
  14. DUO FUSION [Concomitant]
     Active Substance: CALCIUM CARBONATE\FAMOTIDINE\MAGNESIUM HYDROXIDE
  15. IMODIUM [Concomitant]
     Active Substance: LOPERAMIDE HYDROCHLORIDE
  16. TAXOTERE [Suspect]
     Active Substance: DOCETAXEL
  17. ATENOLOL. [Concomitant]
     Active Substance: ATENOLOL
  18. GAS-X [Concomitant]
     Active Substance: DIMETHICONE
  19. PHAZYME [Concomitant]
     Active Substance: DIMETHICONE 410
  20. PREDNISONE. [Concomitant]
     Active Substance: PREDNISONE
  21. SENOKOT [Concomitant]
     Active Substance: SENNOSIDES
  22. TUMS [Concomitant]
     Active Substance: CALCIUM CARBONATE
  23. PREMIER PROTEIN PROTEIN DRINK [Concomitant]

REACTIONS (8)
  - Constipation [None]
  - Diarrhoea [None]
  - Nausea [None]
  - Hypophagia [None]
  - Cachexia [None]
  - Dehydration [None]
  - Fluid intake restriction [None]
  - Fatigue [None]

NARRATIVE: CASE EVENT DATE: 20170128
